FAERS Safety Report 18570070 (Version 1)
Quarter: 2020Q4

REPORT INFORMATION
  Report Type: Spontaneous
  Country: US (occurrence: US)
  Receive Date: 20201201
  Receipt Date: 20201201
  Transmission Date: 20210114
  Serious: Yes (Other)
  Sender: FDA-Public Use
  Company Number: None

PATIENT
  Age: 60 Year
  Sex: Male

DRUGS (13)
  1. METOPROL SUC ER [Concomitant]
  2. APAP/CODEINE [Concomitant]
     Active Substance: ACETAMINOPHEN\CODEINE PHOSPHATE
  3. FAMOTIDINE. [Concomitant]
     Active Substance: FAMOTIDINE
  4. LEVETIRACETA [Concomitant]
     Active Substance: LEVETIRACETAM
  5. ONDANSETRON [Concomitant]
     Active Substance: ONDANSETRON
  6. DEXAMETHSON [Concomitant]
  7. ZOLPIDEM ER [Concomitant]
     Active Substance: ZOLPIDEM TARTRATE
  8. TEMOZOLOMIDE 180MG CAP [Suspect]
     Active Substance: TEMOZOLOMIDE
     Indication: BRAIN NEOPLASM MALIGNANT
     Dosage: 1 CAP QPM PO 7 D WK FOR 6 WK
     Route: 048
     Dates: start: 20200902
  9. DOXYCYCL HYC [Concomitant]
  10. PROCHLOPRPER [Concomitant]
  11. FLUCONAZOLE. [Concomitant]
     Active Substance: FLUCONAZOLE
  12. NOVOLOG [Concomitant]
     Active Substance: INSULIN ASPART
  13. ROSUVASTATIN. [Concomitant]
     Active Substance: ROSUVASTATIN

REACTIONS (1)
  - Brain tumour operation [None]

NARRATIVE: CASE EVENT DATE: 20201130
